FAERS Safety Report 24731677 (Version 1)
Quarter: 2024Q4

REPORT INFORMATION
  Report Type: Spontaneous
  Country: US (occurrence: None)
  Receive Date: 20241213
  Receipt Date: 20241213
  Transmission Date: 20250115
  Serious: Yes (Hospitalization)
  Sender: Public
  Company Number: None

PATIENT
  Age: 77 Year
  Sex: Male
  Weight: 99 kg

DRUGS (1)
  1. OXYCODONE HYDROCHLORIDE [Suspect]
     Active Substance: OXYCODONE HYDROCHLORIDE
     Indication: Pain
     Dosage: OTHER FREQUENCY : OTHER;?
     Route: 048
     Dates: start: 20240814, end: 20240828

REACTIONS (4)
  - Blood pressure systolic increased [None]
  - Heart rate decreased [None]
  - Blood sodium decreased [None]
  - Blood potassium [None]

NARRATIVE: CASE EVENT DATE: 20240826
